FAERS Safety Report 6552277-4 (Version None)
Quarter: 2010Q1

REPORT INFORMATION
  Report Type: 
  Country: None (occurrence: None)
  Receive Date: 20100126
  Receipt Date: 20100113
  Transmission Date: 20100710
  Serious: Yes (Hospitalization)
  Sender: FDA-Public Use
  Company Number: GB-JNJFOC-20100109323

PATIENT
  Sex: Female

DRUGS (17)
  1. TRAMADOL HYDROCHLORIDE [Suspect]
     Indication: DRUG EXPOSURE DURING PREGNANCY
     Route: 064
  2. AMITRIPTYLINE HCL [Suspect]
     Indication: DRUG EXPOSURE DURING PREGNANCY
     Route: 064
  3. FLUOXETINE [Suspect]
     Indication: DRUG EXPOSURE DURING PREGNANCY
     Route: 064
  4. GABAPENTIN [Suspect]
     Indication: DRUG EXPOSURE DURING PREGNANCY
     Route: 064
  5. MORPHINE SULFATE [Suspect]
     Indication: DRUG EXPOSURE DURING PREGNANCY
     Route: 064
  6. TRIFLUOPERAZINE [Suspect]
     Indication: DRUG EXPOSURE DURING PREGNANCY
     Route: 064
  7. VITAMIN B-12 [Suspect]
     Indication: DRUG EXPOSURE DURING PREGNANCY
     Route: 064
  8. HEPARIN [Concomitant]
  9. IMMUNE GLOBULIN INTRAVENOUS (HUMAN) [Concomitant]
  10. ISOFLURANE [Concomitant]
  11. METHYLPREDNISOLONE [Concomitant]
  12. NITROUS OXIDE [Concomitant]
  13. PARACETAMOL [Concomitant]
  14. RANITIDINE [Concomitant]
  15. ROCURONIUM [Concomitant]
  16. SODIUM CITRATE [Concomitant]
  17. THIOPENTAL SODIUM [Concomitant]

REACTIONS (3)
  - APNOEA [None]
  - DRUG EXPOSURE DURING PREGNANCY [None]
  - DRUG WITHDRAWAL SYNDROME [None]
